FAERS Safety Report 22141398 (Version 2)
Quarter: 2023Q1

REPORT INFORMATION
  Report Type: Report from Study
  Country: BR (occurrence: BR)
  Receive Date: 20230327
  Receipt Date: 20230330
  Transmission Date: 20230418
  Serious: Yes (Hospitalization, Other)
  Sender: FDA-Public Use
  Company Number: BR-CELLTRION INC.-2023BR006357

PATIENT

DRUGS (1)
  1. INFLIXIMAB [Suspect]
     Active Substance: INFLIXIMAB
     Indication: Crohn^s disease
     Dosage: 11 AMPOULES EVERY MONTH
     Route: 042
     Dates: start: 20220914

REACTIONS (7)
  - Intestinal obstruction [Unknown]
  - Abdominal pain upper [Unknown]
  - Constipation [Unknown]
  - Vomiting [Unknown]
  - Bacterial abdominal infection [Unknown]
  - Intentional dose omission [Unknown]
  - Off label use [Unknown]
